FAERS Safety Report 8539568-2 (Version None)
Quarter: 2012Q3

REPORT INFORMATION
  Report Type: 
  Country: None (occurrence: None)
  Receive Date: 20120726
  Receipt Date: 20120716
  Transmission Date: 20120928
  Serious: Yes (Death, Hospitalization)
  Sender: FDA-Public Use
  Company Number: US-SANOFI-AVENTIS-2012SA050732

PATIENT
  Age: 58 Year
  Sex: Female

DRUGS (3)
  1. AMBIEN [Suspect]
     Route: 048
  2. MORPHINE SULFATE [Suspect]
  3. PERCOCET [Suspect]
     Dosage: 325/10MG TABLETS

REACTIONS (1)
  - DEATH [None]
